FAERS Safety Report 6384819-6 (Version None)
Quarter: 2009Q4

REPORT INFORMATION
  Report Type: 
  Country: None (occurrence: None)
  Receive Date: 20091001
  Receipt Date: 20090922
  Transmission Date: 20100525
  Serious: Yes (Other)
  Sender: FDA-Public Use
  Company Number: US-AMGEN-QUU363951

PATIENT
  Sex: Female
  Weight: 110.8 kg

DRUGS (9)
  1. ENBREL [Suspect]
     Indication: PSORIATIC ARTHROPATHY
     Route: 058
     Dates: start: 20080101
  2. ENBREL [Suspect]
     Indication: PSORIASIS
  3. HUMIRA [Suspect]
  4. UNSPECIFIED PAIN MEDICATION [Concomitant]
  5. SULFASALAZINE [Concomitant]
     Route: 048
     Dates: start: 20080101
  6. SIMVASTATIN [Concomitant]
     Dates: start: 20080101
  7. TYLENOL (CAPLET) [Concomitant]
     Dates: start: 20080101
  8. NAPROXEN [Concomitant]
     Dates: start: 20080101
  9. IBUPROFEN [Concomitant]

REACTIONS (7)
  - ABASIA [None]
  - DRUG INEFFECTIVE [None]
  - INJECTION SITE PAIN [None]
  - JOINT SWELLING [None]
  - MUSCULOSKELETAL PAIN [None]
  - OEDEMA PERIPHERAL [None]
  - PSORIATIC ARTHROPATHY [None]
